FAERS Safety Report 6467949-X (Version None)
Quarter: 2009Q4

REPORT INFORMATION
  Report Type: 
  Country: None (occurrence: None)
  Receive Date: 20091127
  Receipt Date: 20091118
  Transmission Date: 20100525
  Serious: Yes (Hospitalization)
  Sender: FDA-Public Use
  Company Number: DSA_42048_2009

PATIENT
  Age: 28 Year
  Sex: Female

DRUGS (8)
  1. ENALAPRIL                        ( 10 MG, 20 MG) [Suspect]
     Indication: HYPERTENSION
     Dosage: (10 MG  EVERY 12 HOURS) , ( 20 MG, EVERY 12 HOURS)
  2. ENALAPRIL                        ( 10 MG, 20 MG) [Suspect]
     Indication: HYPERTENSION
     Dosage: (10 MG  EVERY 12 HOURS) , ( 20 MG, EVERY 12 HOURS)
  3. PREDNISONE [Concomitant]
  4. ATENOLOL [Concomitant]
  5. AMLODIPINE [Concomitant]
  6. FUROSEMIDE [Concomitant]
  7. SIMVASTATIN [Concomitant]
  8. CALCIUM [Concomitant]

REACTIONS (7)
  - ANGIOEDEMA [None]
  - BLOOD PRESSURE INCREASED [None]
  - BRAIN OEDEMA [None]
  - CAPILLARY LEAK SYNDROME [None]
  - DEPRESSED LEVEL OF CONSCIOUSNESS [None]
  - GRAND MAL CONVULSION [None]
  - REVERSIBLE POSTERIOR LEUKOENCEPHALOPATHY SYNDROME [None]
